FAERS Safety Report 5556106-7 (Version None)
Quarter: 2007Q4

REPORT INFORMATION
  Report Type: 
  Country: None (occurrence: None)
  Receive Date: 20071213
  Receipt Date: 20071210
  Transmission Date: 20080405
  Serious: Yes (Death, Hospitalization, Other)
  Sender: FDA-Public Use
  Company Number: PHEH2005US06644

PATIENT
  Age: 55 Year
  Sex: Male
  Weight: 118.37 kg

DRUGS (15)
  1. ZOMETA [Suspect]
     Indication: METASTASES TO BONE
     Dosage: 4 MG, QMO
     Route: 042
     Dates: start: 20030317, end: 20050603
  2. ZOMETA [Suspect]
     Dosage: UNK, UNK
     Dates: start: 20050906
  3. CYTOXAN [Concomitant]
     Dates: start: 20031001, end: 20040201
  4. VELCADE [Concomitant]
     Indication: MULTIPLE MYELOMA
     Dates: start: 20040318, end: 20040801
  5. VELCADE [Concomitant]
     Dates: start: 20051019
  6. VINCRISTINE + ADRIAMYCIN + DEXAMETHASONE [Concomitant]
     Indication: MULTIPLE MYELOMA
     Dosage: PART OF VAD
     Dates: start: 20030501, end: 20030701
  7. THALIDOMIDE [Concomitant]
     Indication: MULTIPLE MYELOMA
     Dates: start: 20030801, end: 20031001
  8. DECADRON #1 [Concomitant]
     Dates: start: 20031001, end: 20040201
  9. CLEOCIN HYDROCHLORIDE [Concomitant]
     Dosage: 300 MG, Q8H
     Dates: start: 20041101
  10. DARVOCET [Concomitant]
  11. AMLODIPINE BESYLATE [Concomitant]
  12. FENTANYL [Concomitant]
     Indication: BONE PAIN
     Dosage: 75 MCG Q3DAYS
  13. BEXTRA [Concomitant]
  14. MORPHINE [Concomitant]
     Indication: PAIN
  15. AREDIA [Suspect]

REACTIONS (40)
  - ATELECTASIS [None]
  - BONE DISORDER [None]
  - BONE PAIN [None]
  - CHEST X-RAY ABNORMAL [None]
  - DEATH [None]
  - DENTAL CARIES [None]
  - DENTAL TREATMENT [None]
  - FEBRILE NEUTROPENIA [None]
  - IMPAIRED HEALING [None]
  - JAW OPERATION [None]
  - LEUKOPENIA [None]
  - LUNG DISORDER [None]
  - MALIGNANT MELANOMA [None]
  - MALIGNANT NEOPLASM PROGRESSION [None]
  - MASS [None]
  - MOUTH ULCERATION [None]
  - MULTIPLE MYELOMA [None]
  - OEDEMA MUCOSAL [None]
  - ORAL INFECTION [None]
  - OSTEOMYELITIS [None]
  - OSTEONECROSIS [None]
  - PAIN [None]
  - PAIN IN JAW [None]
  - PERICORONITIS [None]
  - PERIODONTAL DISEASE [None]
  - PNEUMONIA [None]
  - PYREXIA [None]
  - RADIOTHERAPY [None]
  - SOFT TISSUE INFECTION [None]
  - STAPHYLOCOCCAL INFECTION [None]
  - STEM CELL TRANSPLANT [None]
  - SURGERY [None]
  - SWELLING [None]
  - TOOTH ABSCESS [None]
  - TOOTH DISORDER [None]
  - TOOTH EXTRACTION [None]
  - TOOTH FRACTURE [None]
  - TUMOUR LYSIS SYNDROME [None]
  - WOUND DEBRIDEMENT [None]
  - WOUND DRAINAGE [None]
